FAERS Safety Report 7047618-8 (Version None)
Quarter: 2010Q4

REPORT INFORMATION
  Report Type: 
  Country: None (occurrence: None)
  Receive Date: 20101014
  Receipt Date: 20101014
  Transmission Date: 20110411
  Serious: Yes (Other)
  Sender: FDA-Public Use
  Company Number: None

PATIENT
  Age: 52 Year
  Sex: Male
  Weight: 97.9 kg

DRUGS (1)
  1. OXYCODONE AND ACETAMINOPHEN [Suspect]
     Indication: BACK PAIN
     Dosage: 5-325 MG

REACTIONS (2)
  - BLEPHAROSPASM [None]
  - DEPRESSED LEVEL OF CONSCIOUSNESS [None]
